FAERS Safety Report 16977900 (Version 1)
Quarter: 2019Q4

REPORT INFORMATION
  Report Type: Spontaneous
  Country: CA (occurrence: CA)
  Receive Date: 20191031
  Receipt Date: 20191031
  Transmission Date: 20200122
  Serious: Yes (Hospitalization, Other)
  Sender: FDA-Public Use
  Company Number: CA-AUROBINDO-AUR-APL-2019-069858

PATIENT

DRUGS (12)
  1. OXYNEO [Suspect]
     Active Substance: OXYCODONE
     Indication: PRODUCT USED FOR UNKNOWN INDICATION
     Dosage: 10 MILLIGRAM, TWO TIMES A DAY
     Route: 065
  2. ACETAMINOPHEN. [Concomitant]
     Active Substance: ACETAMINOPHEN
     Dosage: 500 MILLIGRAM, FOUR TIMES/DAY
     Route: 065
  3. CLONAZEPAM. [Concomitant]
     Active Substance: CLONAZEPAM
     Indication: PRODUCT USED FOR UNKNOWN INDICATION
     Dosage: 0.5 MILLIGRAM, TWO TIMES A DAY
     Route: 065
  4. ADVAIR HFA [Suspect]
     Active Substance: FLUTICASONE PROPIONATE\SALMETEROL XINAFOATE
     Indication: ASTHMA-CHRONIC OBSTRUCTIVE PULMONARY DISEASE OVERLAP SYNDROME
     Dosage: 1 DOSAGE FORM, TWO TIMES A DAY
  5. CIPRALEX [Concomitant]
     Active Substance: ESCITALOPRAM OXALATE
     Indication: PRODUCT USED FOR UNKNOWN INDICATION
     Dosage: 10 MILLIGRAM, ONCE A DAY
     Route: 065
  6. NAPROXEN. [Concomitant]
     Active Substance: NAPROXEN
     Indication: PRODUCT USED FOR UNKNOWN INDICATION
     Dosage: 375 MILLIGRAM, TWO TIMES A DAY
     Route: 065
  7. ACETAMINOPHEN. [Concomitant]
     Active Substance: ACETAMINOPHEN
     Indication: PRODUCT USED FOR UNKNOWN INDICATION
     Dosage: UNK
     Route: 065
  8. ADVAIR HFA [Suspect]
     Active Substance: FLUTICASONE PROPIONATE\SALMETEROL XINAFOATE
     Indication: ASTHMA
     Dosage: UNK
     Route: 065
  9. GABAPENTIN. [Suspect]
     Active Substance: GABAPENTIN
     Dosage: 400 MILLIGRAM, FOUR TIMES/DAY
     Route: 065
  10. GABAPENTIN. [Suspect]
     Active Substance: GABAPENTIN
     Indication: PRODUCT USED FOR UNKNOWN INDICATION
     Dosage: 1200 MICROGRAM
     Route: 065
  11. SALBUTAMOL [Concomitant]
     Active Substance: ALBUTEROL
     Indication: PRODUCT USED FOR UNKNOWN INDICATION
     Dosage: UNK
     Route: 065
  12. TIOTROPIUM BROMIDE [Concomitant]
     Active Substance: TIOTROPIUM BROMIDE
     Indication: PRODUCT USED FOR UNKNOWN INDICATION
     Dosage: UNK
     Route: 065

REACTIONS (22)
  - Nasopharyngitis [Recovering/Resolving]
  - Costochondritis [Recovering/Resolving]
  - Decreased appetite [Recovering/Resolving]
  - Dyspnoea [Recovering/Resolving]
  - Movement disorder [Recovering/Resolving]
  - Pubic pain [Recovering/Resolving]
  - Haemoptysis [Recovering/Resolving]
  - Ill-defined disorder [Recovering/Resolving]
  - Productive cough [Recovering/Resolving]
  - Hypersomnia [Recovering/Resolving]
  - Malaise [Recovering/Resolving]
  - Speech disorder [Recovering/Resolving]
  - Chest pain [Recovering/Resolving]
  - Pelvic pain [Recovering/Resolving]
  - Pneumonia [Recovering/Resolving]
  - Dysphagia [Recovering/Resolving]
  - Fatigue [Recovering/Resolving]
  - Obstruction [Recovering/Resolving]
  - Bronchial disorder [Recovering/Resolving]
  - Intestinal obstruction [Recovering/Resolving]
  - Treatment noncompliance [Recovering/Resolving]
  - Nausea [Recovering/Resolving]
